FAERS Safety Report 9610870 (Version 1)
Quarter: 2013Q4

REPORT INFORMATION
  Report Type: Report from Study
  Country: CA (occurrence: CA)
  Receive Date: 20131009
  Receipt Date: 20131009
  Transmission Date: 20140711
  Serious: Yes (Other)
  Sender: FDA-Public Use
  Company Number: CA-UCBSA-099201

PATIENT
  Sex: Female
  Weight: 55.8 kg

DRUGS (2)
  1. CIMZIA [Suspect]
     Indication: RHEUMATOID ARTHRITIS
     Route: 058
     Dates: start: 20130521, end: 2013
  2. CIMZIA [Suspect]
     Indication: RHEUMATOID ARTHRITIS
     Dosage: NB OF INTAKES: WKS: 0-2-4
     Route: 058
     Dates: start: 20130409, end: 20130507

REACTIONS (1)
  - Herpes zoster [Not Recovered/Not Resolved]
